FAERS Safety Report 12636260 (Version 3)
Quarter: 2018Q4

REPORT INFORMATION
  Report Type: Spontaneous
  Country: FR (occurrence: FR)
  Receive Date: 20160809
  Receipt Date: 20181031
  Transmission Date: 20190204
  Serious: Yes (Other)
  Sender: FDA-Public Use
  Company Number: FR-PFIZER INC-2016362011

PATIENT
  Sex: Male
  Weight: 67 kg

DRUGS (2)
  1. XALKORI [Suspect]
     Active Substance: CRIZOTINIB
     Indication: LUNG ADENOCARCINOMA STAGE IV
     Dosage: 250 MG, 2X/DAY
     Route: 048
     Dates: start: 20150414
  2. ERGYDESMODIUM [Interacting]
     Active Substance: DIETARY SUPPLEMENT
     Indication: DETOXIFICATION
     Dosage: 2 DF, DAILY
     Route: 048
     Dates: start: 20151201, end: 20151215

REACTIONS (2)
  - Hepatocellular injury [Recovered/Resolved with Sequelae]
  - Drug interaction [Unknown]

NARRATIVE: CASE EVENT DATE: 20160118
